FAERS Safety Report 9069528 (Version 2)
Quarter: 2013Q4

REPORT INFORMATION
  Report Type: Spontaneous
  Country: GB (occurrence: GB)
  Receive Date: 20130131
  Receipt Date: 20131003
  Transmission Date: 20140711
  Serious: Yes (Other)
  Sender: FDA-Public Use
  Company Number: PHHO2013GB001665

PATIENT
  Sex: Female

DRUGS (6)
  1. METOPROLOL [Suspect]
     Indication: HYPERTENSION
     Dosage: UNK UKN, UNK
     Route: 048
  2. METOPROLOL [Suspect]
     Dosage: UNK UKN, UNK
     Route: 042
  3. DIAMORPHINE [Concomitant]
     Indication: PAIN
     Dosage: UNK UKN, UNK
  4. CYCLIZINE [Concomitant]
     Dosage: UNK UKN, UNK
  5. DEXAMETHASONE [Concomitant]
     Indication: CONDITION AGGRAVATED
     Dosage: UNK UKN, UNK
  6. TINZAPARIN [Concomitant]
     Dosage: UNK UKN, UNK

REACTIONS (1)
  - Malignant neoplasm progression [Unknown]
